FAERS Safety Report 21974417 (Version 1)
Quarter: 2023Q1

REPORT INFORMATION
  Report Type: Other
  Country: None (occurrence: US)
  Receive Date: 20230209
  Receipt Date: 20230209
  Transmission Date: 20230418
  Serious: Yes (Other)
  Sender: FDA-Public Use
  Company Number: US-Person and Covey-2137727

PATIENT
  Sex: Male

DRUGS (1)
  1. DHS TAR [Suspect]
     Active Substance: COAL TAR
     Route: 003
     Dates: start: 20230124, end: 20230127

REACTIONS (1)
  - Mouth swelling [Recovered/Resolved]

NARRATIVE: CASE EVENT DATE: 20230127
